FAERS Safety Report 18281540 (Version 1)
Quarter: 2020Q3

REPORT INFORMATION
  Report Type: Spontaneous
  Country: US (occurrence: US)
  Receive Date: 20200907
  Receipt Date: 20200907
  Transmission Date: 20201103
  Serious: Yes (Death)
  Sender: FDA-Public Use
  Company Number: None

PATIENT
  Age: 6 Decade
  Sex: Male

DRUGS (3)
  1. MOXIFLOXACIN. [Suspect]
     Active Substance: MOXIFLOXACIN
     Indication: COVID-19
     Dates: start: 2020, end: 2020
  2. OSELTAMIVIR [Suspect]
     Active Substance: OSELTAMIVIR
     Indication: COVID-19
     Dates: start: 2020, end: 2020
  3. METHYLPREDNISOLONE. [Suspect]
     Active Substance: METHYLPREDNISOLONE
     Indication: COVID-19
     Dates: start: 2020, end: 2020

REACTIONS (7)
  - Hypoxia [None]
  - Lung disorder [None]
  - Multiple organ dysfunction syndrome [None]
  - Renal disorder [None]
  - Condition aggravated [None]
  - Cardiac disorder [None]
  - Off label use [None]
